FAERS Safety Report 5385463-X (Version None)
Quarter: 2007Q3

REPORT INFORMATION
  Report Type: 
  Country: None (occurrence: None)
  Receive Date: 20070709
  Receipt Date: 20070709
  Transmission Date: 20080115
  Serious: Yes (Other)
  Sender: FDA-Public Use
  Company Number: None

PATIENT
  Sex: Female
  Weight: 81.6475 kg

DRUGS (1)
  1. DURAGESIC-50 [Suspect]
     Indication: FIBROMYALGIA
     Dosage: 1 PATCH EVERY 3 DAYS TRANSDERMAL
     Route: 062
     Dates: start: 20040101, end: 20070706

REACTIONS (2)
  - PHARMACEUTICAL PRODUCT COMPLAINT [None]
  - WRONG TECHNIQUE IN DRUG USAGE PROCESS [None]
